FAERS Safety Report 8070472-2 (Version None)
Quarter: 2012Q1

REPORT INFORMATION
  Report Type: 
  Country: None (occurrence: None)
  Receive Date: 20120125
  Receipt Date: 20120119
  Transmission Date: 20120608
  Serious: Yes (Death, Hospitalization, Other)
  Sender: FDA-Public Use
  Company Number: US-ELI_LILLY_AND_COMPANY-US201201005749

PATIENT
  Sex: Female

DRUGS (3)
  1. ALIMTA [Suspect]
     Indication: LUNG NEOPLASM MALIGNANT
     Dosage: UNK, UNKNOWN
     Dates: start: 20101228, end: 20110520
  2. ALIMTA [Suspect]
     Dosage: 688.5 MG, UNKNOWN
  3. ALIMTA [Suspect]
     Dosage: 730 MG, UNKNOWN

REACTIONS (5)
  - DEATH [None]
  - HOSPICE CARE [None]
  - WEIGHT DECREASED [None]
  - PERFORMANCE STATUS DECREASED [None]
  - NEOPLASM PROGRESSION [None]
